FAERS Safety Report 5136993-7 (Version None)
Quarter: 2006Q4

REPORT INFORMATION
  Report Type: 
  Country: None (occurrence: None)
  Receive Date: 20061030
  Receipt Date: 20061019
  Transmission Date: 20070319
  Serious: Yes (Other)
  Sender: FDA-Public Use
  Company Number: US-JNJFOC-20061004583

PATIENT
  Sex: Male

DRUGS (5)
  1. INFLIXIMAB [Suspect]
     Indication: RHEUMATOID ARTHRITIS
     Route: 042
  2. METHOTREXATE SODIUM [Concomitant]
  3. CELEBREX [Concomitant]
  4. FOLIC ACID [Concomitant]
  5. ALBUTEROL [Concomitant]
     Route: 055

REACTIONS (1)
  - ACUTE PULMONARY HISTOPLASMOSIS [None]
